FAERS Safety Report 9407208 (Version 1)
Quarter: 2013Q3

REPORT INFORMATION
  Report Type: Report from Study
  Country: CA (occurrence: CA)
  Receive Date: 20130718
  Receipt Date: 20130718
  Transmission Date: 20140515
  Serious: Yes (Hospitalization)
  Sender: FDA-Public Use
  Company Number: CA-JNJFOC-20130708574

PATIENT
  Sex: Female
  Weight: 110 kg

DRUGS (5)
  1. REMICADE [Suspect]
     Indication: CROHN^S DISEASE
     Route: 042
     Dates: start: 20130710
  2. REMICADE [Suspect]
     Indication: CROHN^S DISEASE
     Route: 042
     Dates: start: 20120727
  3. NOVO RAPID [Concomitant]
     Route: 065
  4. LEVEMIR [Concomitant]
     Route: 065
  5. BUTRANS [Concomitant]
     Route: 065

REACTIONS (2)
  - Food poisoning [Unknown]
  - Crohn^s disease [Unknown]
